FAERS Safety Report 24660093 (Version 1)
Quarter: 2024Q4

REPORT INFORMATION
  Report Type: Spontaneous
  Country: CN (occurrence: CN)
  Receive Date: 20241125
  Receipt Date: 20241125
  Transmission Date: 20250115
  Serious: Yes (Life-Threatening)
  Sender: PAREXEL
  Company Number: CN-SHANGHAI JUNSHI BIOSCIENCES CO., LTD.-CN2024012139

PATIENT

DRUGS (8)
  1. TORIPALIMAB [Suspect]
     Active Substance: TORIPALIMAB
     Indication: Malignant neoplasm of renal pelvis
     Dosage: 240 MG
     Route: 041
     Dates: start: 20241029, end: 20241029
  2. TORIPALIMAB [Suspect]
     Active Substance: TORIPALIMAB
     Indication: Laryngeal cancer
  3. GEMCITABINE HYDROCHLORIDE [Suspect]
     Active Substance: GEMCITABINE HYDROCHLORIDE
     Indication: Malignant neoplasm of renal pelvis
     Dosage: 1 G (D1)
     Route: 041
     Dates: start: 20241029, end: 20241029
  4. GEMCITABINE HYDROCHLORIDE [Suspect]
     Active Substance: GEMCITABINE HYDROCHLORIDE
     Indication: Laryngeal cancer
  5. GEMCITABINE HYDROCHLORIDE [Suspect]
     Active Substance: GEMCITABINE HYDROCHLORIDE
     Indication: Malignant neoplasm of renal pelvis
     Dosage: 400 MG (D1)
     Route: 041
     Dates: start: 20241029, end: 20241029
  6. GEMCITABINE HYDROCHLORIDE [Suspect]
     Active Substance: GEMCITABINE HYDROCHLORIDE
     Indication: Laryngeal cancer
     Dosage: 1.2 G (D8)
     Route: 041
     Dates: start: 20241105, end: 20241105
  7. CISPLATIN [Suspect]
     Active Substance: CISPLATIN
     Indication: Malignant neoplasm of renal pelvis
     Dosage: 35 MG (D1-D3), QD
     Route: 041
     Dates: start: 20241029, end: 20241031
  8. CISPLATIN [Suspect]
     Active Substance: CISPLATIN
     Indication: Laryngeal cancer

REACTIONS (1)
  - Myelosuppression [Recovering/Resolving]

NARRATIVE: CASE EVENT DATE: 20241103
